FAERS Safety Report 14372203 (Version 4)
Quarter: 2020Q2

REPORT INFORMATION
  Report Type: Spontaneous
  Country: BR (occurrence: BR)
  Receive Date: 20180110
  Receipt Date: 20200521
  Transmission Date: 20200713
  Serious: Yes (Death, Hospitalization, Other)
  Sender: FDA-Public Use
  Company Number: BR-ABBVIE-18P-020-2217861-00

PATIENT
  Sex: Male
  Weight: 70 kg

DRUGS (15)
  1. DIAMICRON [Concomitant]
     Active Substance: GLICLAZIDE
     Indication: DIABETES MELLITUS
     Route: 048
  2. SIMVASTATIN. [Concomitant]
     Active Substance: SIMVASTATIN
     Indication: PRODUCT USED FOR UNKNOWN INDICATION
  3. DEPAKOTE ER [Suspect]
     Active Substance: DIVALPROEX SODIUM
     Dosage: WEEKLY DOSE: 2 TABLETS PER WEEK
     Route: 048
     Dates: start: 2018, end: 2018
  4. COGLIVE [Concomitant]
     Indication: MEMORY IMPAIRMENT
  5. NUTREM [Concomitant]
     Indication: VITAMIN SUPPLEMENTATION
  6. DIAMICRON [Concomitant]
     Active Substance: GLICLAZIDE
     Indication: PRODUCT USED FOR UNKNOWN INDICATION
  7. MILGAMMA [Concomitant]
     Indication: MYOSITIS
     Route: 048
  8. ROSUVASTATIN CALCIUM. [Concomitant]
     Active Substance: ROSUVASTATIN CALCIUM
     Indication: BLOOD CHOLESTEROL INCREASED
     Dosage: DAILY DOSE: 1 TABLET, AT NIGHT
     Route: 048
  9. DEPAKOTE ER [Suspect]
     Active Substance: DIVALPROEX SODIUM
     Dosage: WEEKLY DOSE: 1 TABLETS PER WEEK
     Route: 048
     Dates: start: 2018, end: 201804
  10. ORGANONEURO CEREBRAL [Concomitant]
     Indication: CEREBRAL DISORDER
     Dosage: DAILY DOSE: 3 TABLET; (1 TABLET IN THE MORNING/AT THE AFTERNOON/AT NIGHT)
     Route: 048
  11. ORGANONEURO CEREBRAL [Concomitant]
     Indication: PRODUCT USED FOR UNKNOWN INDICATION
  12. DEPAKOTE ER [Suspect]
     Active Substance: DIVALPROEX SODIUM
     Indication: MEMORY IMPAIRMENT
     Dosage: DAILY DOSE: 1 TABLET; AT NIGHT
     Route: 048
  13. COMPLEX B [Concomitant]
     Active Substance: CALCIUM PANTOTHENATE\CYANOCOBALAMIN\NIACINAMIDE\PYRIDOXINE HYDROCHLORIDE\RIBOFLAVIN\THIAMINE MONONITRATE
     Indication: PRODUCT USED FOR UNKNOWN INDICATION
  14. DEPAKOTE ER [Suspect]
     Active Substance: DIVALPROEX SODIUM
     Dosage: WEEKLY DOSE: 3 TABLETS PER WEEK
     Route: 048
     Dates: end: 2018
  15. MILGAMMA [Concomitant]
     Indication: NEUROPATHY PERIPHERAL

REACTIONS (15)
  - Prostate cancer [Fatal]
  - Myocardial infarction [Unknown]
  - Senile dementia [Not Recovered/Not Resolved]
  - Metabolic disorder [Not Recovered/Not Resolved]
  - Drug ineffective [Not Recovered/Not Resolved]
  - Dysuria [Not Recovered/Not Resolved]
  - Off label use [Unknown]
  - Blood sodium decreased [Recovered/Resolved]
  - Feeling abnormal [Recovered/Resolved]
  - Weight decreased [Recovering/Resolving]
  - Product use in unapproved indication [Unknown]
  - Tremor [Recovered/Resolved]
  - Neuropathy peripheral [Not Recovered/Not Resolved]
  - Speech disorder [Recovered/Resolved]
  - Gait inability [Recovered/Resolved]

NARRATIVE: CASE EVENT DATE: 2017
